FAERS Safety Report 12599769 (Version 1)
Quarter: 2016Q3

REPORT INFORMATION
  Report Type: Spontaneous
  Country: US (occurrence: US)
  Receive Date: 20160727
  Receipt Date: 20160727
  Transmission Date: 20161109
  Serious: No
  Sender: FDA-Public Use
  Company Number: US-BRISTOL-MYERS SQUIBB COMPANY-BMS-2016-058698

PATIENT

DRUGS (2)
  1. COUMADIN [Suspect]
     Active Substance: WARFARIN SODIUM
     Indication: PROTEIN S DEFICIENCY
  2. COUMADIN [Suspect]
     Active Substance: WARFARIN SODIUM
     Indication: PROTEIN C DEFICIENCY
     Dosage: UNK
     Route: 065

REACTIONS (1)
  - Drug resistance [Unknown]
